FAERS Safety Report 6655457-2 (Version None)
Quarter: 2010Q1

REPORT INFORMATION
  Report Type: 
  Country: None (occurrence: None)
  Receive Date: 20100329
  Receipt Date: 20100319
  Transmission Date: 20100710
  Serious: Yes (Other)
  Sender: FDA-Public Use
  Company Number: BR-PFIZER INC-2010035723

PATIENT
  Age: 2 Month
  Sex: Female

DRUGS (5)
  1. DEPO-PROVERA [Suspect]
     Indication: CONTRACEPTION
     Dosage: 150 MG, EVERY 3 MONTHS
     Route: 063
     Dates: start: 19991201, end: 20010101
  2. DEPO-PROVERA [Suspect]
     Indication: LACTATION INHIBITION THERAPY
  3. DEPO-PROVERA [Suspect]
     Dosage: 50 MG, MONTHLY
     Route: 063
     Dates: start: 19991201, end: 20010101
  4. DEPO-PROVERA [Suspect]
  5. VITAMIN A AND D [Concomitant]
     Dosage: UNK

REACTIONS (4)
  - DIARRHOEA [None]
  - DRUG EXPOSURE VIA BREAST MILK [None]
  - VIRAL INFECTION [None]
  - VOMITING [None]
